FAERS Safety Report 8773394 (Version 1)
Quarter: 2012Q4

REPORT INFORMATION
  Report Type: Report from Study
  Country: CA (occurrence: CA)
  Receive Date: 20120907
  Receipt Date: 20120907
  Transmission Date: 20130627
  Serious: Yes (Death)
  Sender: FDA-Public Use
  Company Number: CA-ROCHE-1118537

PATIENT
  Age: 65 Year
  Sex: Male

DRUGS (11)
  1. ZELBORAF [Suspect]
     Indication: METASTATIC MALIGNANT MELANOMA
     Route: 048
     Dates: start: 201206, end: 201208
  2. DILAUDID [Concomitant]
  3. ACETAMINOPHEN [Concomitant]
  4. OXAZEPAM [Concomitant]
  5. DOCUSATE SODIUM [Concomitant]
  6. SENNA [Concomitant]
  7. GRAVOL [Concomitant]
     Route: 065
  8. PANTOLOC [Concomitant]
  9. DECADRON [Concomitant]
  10. LANTUS [Concomitant]
  11. HUMALOG [Concomitant]

REACTIONS (1)
  - Death [Fatal]
